FAERS Safety Report 4338340-7 (Version None)
Quarter: 2004Q2

REPORT INFORMATION
  Report Type: 
  Country: None (occurrence: None)
  Receive Date: 20040409
  Receipt Date: 20040330
  Transmission Date: 20050107
  Serious: Yes (Other)
  Sender: FDA-Public Use
  Company Number: K200400468

PATIENT
  Age: 53 Year
  Sex: Female

DRUGS (8)
  1. ALTACE CAPSULES (RAMPIRIL) CAPSULE, 1.25MG [Suspect]
     Indication: HYPERTENSION
     Dosage: 1.25 MG, QD, ORAL
     Route: 048
     Dates: start: 20040308
  2. ASPIRIN [Concomitant]
  3. MYCOPHENOLATE MOFETIL (MYCOPHENOLATE MOFETIL) [Concomitant]
  4. CALCICHEW (CALCIUM CARBONATE) [Concomitant]
  5. ATORVASTATIN (ATORVASTATIN) [Concomitant]
  6. AMLODIPINE [Concomitant]
  7. NEORAL [Concomitant]
  8. PREDNISOLONE [Concomitant]

REACTIONS (1)
  - MOOD SWINGS [None]
